FAERS Safety Report 26071782 (Version 1)
Quarter: 2025Q4

REPORT INFORMATION
  Report Type: Spontaneous
  Country: US (occurrence: US)
  Receive Date: 20251120
  Receipt Date: 20251120
  Transmission Date: 20260118
  Serious: No
  Sender: TAKEDA
  Company Number: US-TAKEDA-2025TUS104596

PATIENT
  Age: 18 Year
  Sex: Female
  Weight: 77 kg

DRUGS (1)
  1. TAKHZYRO [Suspect]
     Active Substance: LANADELUMAB-FLYO
     Indication: Product used for unknown indication
     Dosage: 300 MILLIGRAM/MILLILITERS, Q2WEEKS
     Dates: start: 202305

REACTIONS (1)
  - Hereditary angioedema [Unknown]
